FAERS Safety Report 21294244 (Version 6)
Quarter: 2024Q3

REPORT INFORMATION
  Report Type: Report from Study
  Country: PA (occurrence: PA)
  Receive Date: 20220905
  Receipt Date: 20240809
  Transmission Date: 20241017
  Serious: Yes (Life-Threatening, Hospitalization, Other)
  Sender: NOVARTIS
  Company Number: PA-NOVARTISPH-NVSC2021PA015414

PATIENT
  Age: 53 Year
  Sex: Female

DRUGS (5)
  1. KISQALI [Suspect]
     Active Substance: RIBOCICLIB
     Indication: Breast cancer metastatic
     Dosage: 600 MG, QD
     Route: 048
     Dates: start: 20200220
  2. KISQALI [Suspect]
     Active Substance: RIBOCICLIB
     Indication: Nodule
     Dosage: 600 MG, QD
     Route: 048
     Dates: start: 20200716
  3. KISQALI [Suspect]
     Active Substance: RIBOCICLIB
     Dosage: 600 MG, QD (ONCE PER DAY)
     Route: 048
     Dates: start: 2020
  4. KISQALI [Suspect]
     Active Substance: RIBOCICLIB
     Dosage: 600 MG, BID
     Route: 048
     Dates: start: 20200220, end: 202402
  5. ANASTROZOLE [Concomitant]
     Active Substance: ANASTROZOLE
     Indication: Product used for unknown indication
     Dosage: UNK
     Route: 065

REACTIONS (19)
  - Decreased immune responsiveness [Not Recovered/Not Resolved]
  - Skin discolouration [Not Recovered/Not Resolved]
  - Peripheral swelling [Unknown]
  - Feeling hot [Not Recovered/Not Resolved]
  - Breast neoplasm [Unknown]
  - Pancytopenia [Unknown]
  - Asthenia [Unknown]
  - Malaise [Unknown]
  - Nasopharyngitis [Unknown]
  - Weight decreased [Unknown]
  - Chest pain [Unknown]
  - Lung disorder [Recovering/Resolving]
  - Blister [Unknown]
  - Cough [Unknown]
  - Back pain [Unknown]
  - Haemoglobin increased [Unknown]
  - Haemoglobin decreased [Unknown]
  - COVID-19 [Unknown]
  - Platelet count decreased [Unknown]

NARRATIVE: CASE EVENT DATE: 20210101
